FAERS Safety Report 4860844-9 (Version None)
Quarter: 2005Q4

REPORT INFORMATION
  Report Type: 
  Country: None (occurrence: None)
  Receive Date: 20051216
  Receipt Date: 20051128
  Transmission Date: 20060501
  Serious: Yes (Hospitalization)
  Sender: FDA-Public Use
  Company Number: US_0501110268

PATIENT
  Age: 42 Year
  Sex: Female
  Weight: 117.3 kg

DRUGS (15)
  1. ZYPREXA [Suspect]
     Indication: POST-TRAUMATIC STRESS DISORDER
     Dosage: 10 MG, 2/D;
     Dates: start: 20021017
  2. ZYLOPRIM [Concomitant]
  3. SEROQUEL [Concomitant]
  4. NEURONTIN/USA/ (GABAPENTIN) [Concomitant]
  5. SYNTHROID [Concomitant]
  6. TOPAMAX [Concomitant]
  7. GEODON [Concomitant]
  8. TRICOR [Concomitant]
  9. NIACIN [Concomitant]
  10. PLAVIX [Concomitant]
  11. ASPIRIN [Concomitant]
  12. PRAVACHOL [Concomitant]
  13. LIPITOR [Concomitant]
  14. LOPID [Concomitant]
  15. ZESTRIL [Concomitant]

REACTIONS (22)
  - ALANINE AMINOTRANSFERASE INCREASED [None]
  - ANAL FISSURE [None]
  - ANAL HAEMORRHAGE [None]
  - ASPARTATE AMINOTRANSFERASE INCREASED [None]
  - ATRIAL SEPTAL DEFECT [None]
  - BLOOD CHOLESTEROL INCREASED [None]
  - BLOOD CREATININE INCREASED [None]
  - BLOOD TRIGLYCERIDES INCREASED [None]
  - CHEST PAIN [None]
  - DIABETES MELLITUS [None]
  - DIVERTICULUM [None]
  - DYSPNOEA [None]
  - GLYCOSYLATED HAEMOGLOBIN INCREASED [None]
  - HAEMATURIA [None]
  - HAEMORRHOIDS [None]
  - HYPERLIPIDAEMIA [None]
  - HYPERTENSION [None]
  - LOW DENSITY LIPOPROTEIN INCREASED [None]
  - OBESITY [None]
  - OEDEMA [None]
  - SYNCOPE [None]
  - VAGINAL HAEMORRHAGE [None]
